FAERS Safety Report 6966118-4 (Version None)
Quarter: 2010Q3

REPORT INFORMATION
  Report Type: 
  Country: None (occurrence: None)
  Receive Date: 20100903
  Receipt Date: 20100825
  Transmission Date: 20110219
  Serious: Yes (Hospitalization)
  Sender: FDA-Public Use
  Company Number: PHHY2010FI54163

PATIENT
  Sex: Male

DRUGS (7)
  1. LEPONEX [Suspect]
     Dosage: UNK
     Dates: start: 20100701
  2. LEPONEX [Suspect]
     Dosage: UNK
     Dates: end: 20100816
  3. LEPONEX [Suspect]
     Dosage: UNK
     Dates: start: 20100706
  4. LEPONEX [Suspect]
     Dosage: 12,5MG ONCE A DAY
     Dates: start: 20100811
  5. LEPONEX [Suspect]
     Dosage: 25MG ONCE A DAY
  6. LEPONEX [Suspect]
     Dosage: 25MG TWICE A DAY
  7. LEPONEX [Suspect]
     Dosage: 25MG TWICE A DAY
     Dates: start: 20100816

REACTIONS (10)
  - ABNORMAL BEHAVIOUR [None]
  - ALANINE AMINOTRANSFERASE INCREASED [None]
  - ASTHENIA [None]
  - BLOOD CREATINE PHOSPHOKINASE INCREASED [None]
  - C-REACTIVE PROTEIN INCREASED [None]
  - INFLUENZA LIKE ILLNESS [None]
  - MENTAL DISORDER [None]
  - MUSCLE TWITCHING [None]
  - MYALGIA [None]
  - PYREXIA [None]
